FAERS Safety Report 9028371 (Version 2)
Quarter: 2013Q1

REPORT INFORMATION
  Report Type: Spontaneous
  Country: US (occurrence: US)
  Receive Date: 20130124
  Receipt Date: 20130201
  Transmission Date: 20140127
  Serious: No
  Sender: FDA-Public Use
  Company Number: US-PFIZER INC-2013030729

PATIENT
  Age: 50 Year
  Sex: Female
  Weight: 111 kg

DRUGS (4)
  1. LYRICA [Suspect]
     Indication: FIBROMYALGIA
     Dosage: 50 MG, 3X/DAY
     Route: 048
     Dates: start: 201209, end: 201212
  2. ALEVE [Suspect]
     Indication: PAIN
     Dosage: UNK, 3X/DAY
  3. ELAVIL [Concomitant]
     Indication: DEPRESSION
     Dosage: UNK, 3X/DAY
     Dates: start: 201209
  4. ELAVIL [Concomitant]
     Dosage: UNK, 3X/DAY

REACTIONS (1)
  - Pain [Not Recovered/Not Resolved]
